FAERS Safety Report 17021636 (Version 3)
Quarter: 2019Q4

REPORT INFORMATION
  Report Type: Report from Study
  Country: NL (occurrence: NL)
  Receive Date: 20191112
  Receipt Date: 20191220
  Transmission Date: 20200122
  Serious: Yes (Other)
  Sender: FDA-Public Use
  Company Number: NVSC2019NL029086

PATIENT
  Sex: Male

DRUGS (1)
  1. KYMRIAH [Suspect]
     Active Substance: TISAGENLECLEUCEL
     Indication: ACUTE LYMPHOCYTIC LEUKAEMIA RECURRENT
     Dosage: UNK, ONCE/SINGLE
     Route: 065
     Dates: start: 201908

REACTIONS (2)
  - Minimal residual disease [Unknown]
  - Acute lymphocytic leukaemia recurrent [Unknown]
